FAERS Safety Report 25281423 (Version 2)
Quarter: 2025Q2

REPORT INFORMATION
  Report Type: Spontaneous
  Country: IT (occurrence: IT)
  Receive Date: 20250508
  Receipt Date: 20250518
  Transmission Date: 20250716
  Serious: Yes (Hospitalization, Other)
  Sender: SANDOZ
  Company Number: IT-DOCGEN-2502291

PATIENT
  Age: 5 Decade
  Sex: Female

DRUGS (23)
  1. BIPERIDEN [Suspect]
     Active Substance: BIPERIDEN
     Indication: Schizophrenia
     Route: 065
     Dates: start: 201501
  2. CLOZAPINE [Suspect]
     Active Substance: CLOZAPINE
     Indication: Schizophrenia
     Route: 065
  3. ESCITALOPRAM [Suspect]
     Active Substance: ESCITALOPRAM OXALATE
     Indication: Schizophrenia
     Route: 065
     Dates: start: 201501
  4. HALOPERIDOL [Suspect]
     Active Substance: HALOPERIDOL
     Route: 065
     Dates: start: 201501
  5. HALOPERIDOL [Suspect]
     Active Substance: HALOPERIDOL
     Indication: Schizophrenia
     Route: 065
     Dates: start: 2004
  6. HALOPERIDOL DECANOATE [Suspect]
     Active Substance: HALOPERIDOL DECANOATE
     Route: 030
     Dates: start: 202303
  7. HALOPERIDOL DECANOATE [Suspect]
     Active Substance: HALOPERIDOL DECANOATE
     Dosage: 50 MG, Q2W
     Route: 065
     Dates: start: 201311
  8. HALOPERIDOL DECANOATE [Suspect]
     Active Substance: HALOPERIDOL DECANOATE
     Indication: Schizophrenia
     Route: 065
  9. OLANZAPINE [Suspect]
     Active Substance: OLANZAPINE
     Route: 065
     Dates: start: 2004
  10. OLANZAPINE [Suspect]
     Active Substance: OLANZAPINE
     Indication: Schizophrenia
     Route: 065
  11. OLANZAPINE PAMOATE [Suspect]
     Active Substance: OLANZAPINE PAMOATE
     Indication: Schizophrenia
     Route: 065
  12. QUETIAPINE [Suspect]
     Active Substance: QUETIAPINE
     Indication: Schizophrenia
     Dosage: 500 MG, QD
     Route: 065
     Dates: start: 202009
  13. QUETIAPINE [Suspect]
     Active Substance: QUETIAPINE
     Dosage: 600 MG, QD
     Route: 065
     Dates: start: 202203
  14. QUETIAPINE [Suspect]
     Active Substance: QUETIAPINE
     Dosage: 700 MG, QD
     Route: 065
     Dates: start: 202010
  15. QUETIAPINE [Suspect]
     Active Substance: QUETIAPINE
     Dosage: 700 MG, QD
     Route: 065
     Dates: start: 202110
  16. TRIFLUOPERAZINE [Suspect]
     Active Substance: TRIFLUOPERAZINE HYDROCHLORIDE
     Route: 065
     Dates: start: 202203
  17. TRIFLUOPERAZINE [Suspect]
     Active Substance: TRIFLUOPERAZINE HYDROCHLORIDE
     Indication: Schizophrenia
     Route: 065
     Dates: start: 2015
  18. TRIFLUOPERAZINE [Suspect]
     Active Substance: TRIFLUOPERAZINE HYDROCHLORIDE
     Dosage: 1 MG, QD
     Route: 065
  19. TRIFLUOPERAZINE [Suspect]
     Active Substance: TRIFLUOPERAZINE HYDROCHLORIDE
     Indication: Schizophrenia
     Dosage: 2 MG, QD
     Route: 065
  20. ARIPIPRAZOLE [Concomitant]
     Active Substance: ARIPIPRAZOLE
     Indication: Schizophrenia
     Route: 030
     Dates: start: 202303
  21. PALIPERIDONE PALMITATE [Concomitant]
     Active Substance: PALIPERIDONE PALMITATE
     Indication: Schizophrenia
     Dosage: 100 MG, Q2W
     Route: 065
  22. RISPERIDONE [Concomitant]
     Active Substance: RISPERIDONE
     Indication: Schizophrenia
     Route: 065
  23. VALPROATE [Concomitant]
     Active Substance: VALPROIC ACID
     Indication: Schizophrenia
     Route: 065

REACTIONS (6)
  - Akathisia [Unknown]
  - Intentional product misuse [Unknown]
  - Uterine cancer [Unknown]
  - Weight increased [Unknown]
  - Drug ineffective [Unknown]
  - Treatment noncompliance [Unknown]

NARRATIVE: CASE EVENT DATE: 20141001
